FAERS Safety Report 9165512 (Version 1)
Quarter: 2013Q1

REPORT INFORMATION
  Report Type: Other
  Country: QA (occurrence: QA)
  Receive Date: 20130315
  Receipt Date: 20130315
  Transmission Date: 20140127
  Serious: Yes (Hospitalization)
  Sender: FDA-Public Use
  Company Number: QA-BRISTOL-MYERS SQUIBB COMPANY-17442468

PATIENT
  Age: 51 Year
  Sex: Female
  Weight: 55 kg

DRUGS (11)
  1. ETOPOSIDE [Suspect]
     Indication: HODGKIN^S DISEASE
     Dosage: DAYS1-4
     Route: 042
     Dates: start: 20120423
  2. CISPLATIN [Suspect]
     Indication: HODGKIN^S DISEASE
     Dosage: DYS1-4
     Route: 042
  3. CYTARABINE [Suspect]
     Indication: HODGKIN^S DISEASE
     Dosage: DAY5
     Route: 042
  4. METHYLPREDNISOLONE [Suspect]
     Indication: HODGKIN^S DISEASE
     Dosage: DAYS 1-4
     Route: 042
     Dates: start: 20120423
  5. FILGRASTIM [Suspect]
     Indication: LEUKOPENIA
     Dosage: 8 DAYS
     Route: 058
  6. FUROSEMIDE [Suspect]
     Indication: HYPERTENSION
  7. SPIRONOLACTONE [Suspect]
     Indication: HYPERTENSION
  8. ENTECAVIR [Concomitant]
  9. PROPRANOLOL [Concomitant]
  10. ALLOPURINOL [Concomitant]
  11. LACTULOSE [Concomitant]

REACTIONS (2)
  - Hypophosphataemia [Recovered/Resolved]
  - Leukopenia [Recovered/Resolved]
